FAERS Safety Report 4730131-8 (Version None)
Quarter: 2005Q3

REPORT INFORMATION
  Report Type: 
  Country: None (occurrence: None)
  Receive Date: 20050728
  Receipt Date: 20050718
  Transmission Date: 20060218
  Serious: Yes (Hospitalization)
  Sender: FDA-Public Use
  Company Number: DEU-2005-0001337

PATIENT
  Sex: Male

DRUGS (3)
  1. PALLADONE [Suspect]
     Indication: CANCER PAIN
     Dosage: 20 MG, DAILY, ORAL
     Route: 048
     Dates: start: 20041001, end: 20050201
  2. DEXAMETHASONE [Concomitant]
  3. NAPROXEN [Concomitant]

REACTIONS (3)
  - CONFUSIONAL STATE [None]
  - DISORIENTATION [None]
  - GRIP STRENGTH DECREASED [None]
